FAERS Safety Report 17112031 (Version 1)
Quarter: 2019Q4

REPORT INFORMATION
  Report Type: Spontaneous
  Country: US (occurrence: US)
  Receive Date: 20191203
  Receipt Date: 20191203
  Transmission Date: 20200122
  Serious: Yes (Other)
  Sender: FDA-Public Use
  Company Number: None

PATIENT
  Age: 68 Year
  Sex: Female
  Weight: 60.3 kg

DRUGS (1)
  1. IC MESALAMINE DR 1.2 GM TABLET [Suspect]
     Active Substance: MESALAMINE
     Indication: COLITIS ULCERATIVE
     Dosage: ?          QUANTITY:2 TABLET(S);?
     Route: 048
     Dates: start: 20190412, end: 20190805

REACTIONS (4)
  - Retinal tear [None]
  - Product substitution issue [None]
  - Retinal detachment [None]
  - Alopecia [None]

NARRATIVE: CASE EVENT DATE: 20190619
